FAERS Safety Report 15389238 (Version 1)
Quarter: 2018Q3

REPORT INFORMATION
  Report Type: Spontaneous
  Country: US (occurrence: US)
  Receive Date: 20180917
  Receipt Date: 20180917
  Transmission Date: 20181010
  Serious: Yes (Hospitalization, Other)
  Sender: FDA-Public Use
  Company Number: US-BEH-2018094760

PATIENT
  Age: 66 Year
  Sex: Female

DRUGS (11)
  1. ROCEPHIN [Concomitant]
     Active Substance: CEFTRIAXONE SODIUM
  2. HIZENTRA [Suspect]
     Active Substance: HUMAN IMMUNOGLOBULIN G
     Indication: IMMUNODEFICIENCY COMMON VARIABLE
     Dosage: 8 G, QW
     Route: 058
     Dates: start: 2017
  3. CITALOPRAM [Concomitant]
     Active Substance: CITALOPRAM HYDROBROMIDE
  4. MORPHINE SULFATE. [Concomitant]
     Active Substance: MORPHINE SULFATE
  5. LASIX [Concomitant]
     Active Substance: FUROSEMIDE
  6. METOPROLOL TARTRATE. [Concomitant]
     Active Substance: METOPROLOL TARTRATE
  7. INSULIN [Concomitant]
     Active Substance: INSULIN NOS
  8. TRESIBA [Concomitant]
     Active Substance: INSULIN DEGLUDEC
  9. VICTOZA [Concomitant]
     Active Substance: LIRAGLUTIDE
  10. VANCOMYCIN HCL [Concomitant]
     Active Substance: VANCOMYCIN HYDROCHLORIDE
  11. PLAVIX [Concomitant]
     Active Substance: CLOPIDOGREL BISULFATE

REACTIONS (5)
  - Vitamin D decreased [Unknown]
  - Fall [Unknown]
  - Incision site erythema [Unknown]
  - Upper limb fracture [Unknown]
  - Trigger finger [Unknown]

NARRATIVE: CASE EVENT DATE: 201806
